FAERS Safety Report 18285851 (Version 3)
Quarter: 2020Q4

REPORT INFORMATION
  Report Type: Spontaneous
  Country: AR (occurrence: AR)
  Receive Date: 20200919
  Receipt Date: 20201125
  Transmission Date: 20210113
  Serious: No
  Sender: FDA-Public Use
  Company Number: NVSC2020AR255010

PATIENT
  Age: 57 Year
  Sex: Female

DRUGS (1)
  1. SECUKINUMAB. [Suspect]
     Active Substance: SECUKINUMAB
     Indication: PSORIASIS
     Dosage: UNK
     Route: 065
     Dates: start: 201905, end: 20200909

REACTIONS (3)
  - Odynophagia [Unknown]
  - Oropharyngeal pain [Unknown]
  - SARS-CoV-2 antibody test positive [Recovered/Resolved]
